FAERS Safety Report 12582193 (Version 1)
Quarter: 2016Q3

REPORT INFORMATION
  Report Type: Spontaneous
  Country: US (occurrence: None)
  Receive Date: 20160721
  Receipt Date: 20160721
  Transmission Date: 20161109
  Serious: Yes (Other)
  Sender: FDA-Public Use
  Company Number: None

PATIENT
  Age: 37 Year
  Sex: Male
  Weight: 86.18 kg

DRUGS (11)
  1. NEBULIZER [Concomitant]
     Active Substance: DEVICE
  2. L-METHYLFOLATE [Concomitant]
  3. OXYCODONE 30MG IMMEDIATE REL TAB, 30 MG ACTAVIS [Suspect]
     Active Substance: OXYCODONE HYDROCHLORIDE
     Indication: BACK DISORDER
     Route: 048
     Dates: start: 20160709, end: 20160714
  4. ALBUTEROL. [Concomitant]
     Active Substance: ALBUTEROL
  5. OPANA [Concomitant]
     Active Substance: OXYMORPHONE HYDROCHLORIDE
  6. DYMISTA [Concomitant]
     Active Substance: AZELASTINE HYDROCHLORIDE\FLUTICASONE PROPIONATE
  7. OXYCODONE 30MG IMMEDIATE REL TAB, 30 MG ACTAVIS [Suspect]
     Active Substance: OXYCODONE HYDROCHLORIDE
     Indication: PAIN
     Route: 048
     Dates: start: 20160709, end: 20160714
  8. REQUIP [Concomitant]
     Active Substance: ROPINIROLE HYDROCHLORIDE
  9. OXYCODONE 30MG IMMEDIATE REL TAB, 30 MG ACTAVIS [Suspect]
     Active Substance: OXYCODONE HYDROCHLORIDE
     Indication: FIBROMYALGIA
     Route: 048
     Dates: start: 20160709, end: 20160714
  10. BREO ELLIPTA [Concomitant]
     Active Substance: FLUTICASONE FUROATE\VILANTEROL TRIFENATATE
  11. ZOFRAN [Concomitant]
     Active Substance: ONDANSETRON HYDROCHLORIDE

REACTIONS (7)
  - Nausea [None]
  - Feeling jittery [None]
  - Product taste abnormal [None]
  - Drug ineffective [None]
  - Mydriasis [None]
  - Product substitution issue [None]
  - Blood pressure increased [None]

NARRATIVE: CASE EVENT DATE: 20160711
